FAERS Safety Report 6328856-6 (Version None)
Quarter: 2009Q3

REPORT INFORMATION
  Report Type: 
  Country: None (occurrence: None)
  Receive Date: 20090826
  Receipt Date: 20090814
  Transmission Date: 20100115
  Serious: No
  Sender: FDA-Public Use
  Company Number: US-B.I. PHARMACEUTICALS,INC./RIDGEFIELD-2009-BP-09982BP

PATIENT
  Sex: Female

DRUGS (2)
  1. SPIRIVA [Suspect]
     Dosage: 18 MCG
     Route: 055
     Dates: start: 20090814
  2. PREDNISONE EYE DROPS [Concomitant]
     Indication: CORNEAL TRANSPLANT
     Route: 031
     Dates: start: 20050101

REACTIONS (1)
  - DYSPNOEA [None]
